FAERS Safety Report 17607933 (Version 1)
Quarter: 2020Q1

REPORT INFORMATION
  Report Type: Spontaneous
  Country: IT (occurrence: IT)
  Receive Date: 20200331
  Receipt Date: 20200331
  Transmission Date: 20200409
  Serious: Yes (Hospitalization, Other)
  Sender: FDA-Public Use
  Company Number: IT-SA-2020SA076514

PATIENT
  Age: 58 Year
  Sex: Male

DRUGS (6)
  1. DILATREND [Concomitant]
     Active Substance: CARVEDILOL
     Dosage: UNK
  2. PLAVIX [Suspect]
     Active Substance: CLOPIDOGREL BISULFATE
     Indication: PLATELET AGGREGATION INHIBITION
     Dosage: TABLET, 75 MG (MILLIGRAM)
     Route: 048
     Dates: start: 20170101, end: 20200215
  3. TRIATEC [CAFFEINE CITRATE;CODEINE PHOSPHATE;PARACETAMOL] [Concomitant]
     Dosage: UNK
  4. TORVAST [Concomitant]
     Active Substance: ATORVASTATIN
     Dosage: 40 MG
  5. CARDIOASPIRIN [Suspect]
     Active Substance: ASPIRIN
     Indication: PROPHYLAXIS
     Route: 048
     Dates: start: 20170101, end: 20200215
  6. ANTRA [OMEPRAZOLE] [Concomitant]
     Active Substance: OMEPRAZOLE
     Dosage: 20 MG

REACTIONS (2)
  - Gastrointestinal erosion [Recovered/Resolved]
  - Haematemesis [Recovered/Resolved]

NARRATIVE: CASE EVENT DATE: 20200215
